FAERS Safety Report 6725330-X (Version None)
Quarter: 2010Q2

REPORT INFORMATION
  Report Type: 
  Country: None (occurrence: None)
  Receive Date: 20100514
  Receipt Date: 20100511
  Transmission Date: 20101027
  Serious: Yes (Life-Threatening, Hospitalization)
  Sender: FDA-Public Use
  Company Number: ES-BRISTOL-MYERS SQUIBB COMPANY-15100746

PATIENT
  Age: 69 Year
  Sex: Male

DRUGS (12)
  1. MAYGACE [Suspect]
     Indication: DECREASED APPETITE
     Route: 048
  2. MAYGACE [Suspect]
     Indication: INCREASED APPETITE
     Route: 048
  3. RESINCALCIO [Suspect]
     Indication: HYPERKALAEMIA
     Route: 048
  4. REVLIMID [Concomitant]
     Indication: MULTIPLE MYELOMA
     Route: 048
     Dates: start: 20100331
  5. DEXAMETHASONE [Concomitant]
     Dates: start: 20100101, end: 20100301
  6. OMEPRAZOLE [Concomitant]
     Indication: PROPHYLAXIS
     Dosage: 1DF= 1 TABS
     Route: 048
  7. NOCTAMID [Concomitant]
     Indication: INSOMNIA
     Route: 048
  8. LORAZEPAM [Concomitant]
     Indication: DEPRESSION
     Dosage: 1 DF =0.5
     Route: 048
  9. DEPRAX [Concomitant]
     Indication: DEPRESSION
     Route: 048
  10. ALLOPURINOL [Concomitant]
     Indication: PROPHYLAXIS
     Route: 048
  11. FLUCONAZOLE [Concomitant]
     Indication: FUNGAL INFECTION
     Route: 048
     Dates: end: 20100406
  12. PARACETAMOL [Concomitant]
     Indication: PAIN

REACTIONS (2)
  - HYPERCALCAEMIA [None]
  - SEPSIS [None]
